FAERS Safety Report 12891205 (Version 1)
Quarter: 2016Q4

REPORT INFORMATION
  Report Type: Spontaneous
  Country: US (occurrence: US)
  Receive Date: 20161025
  Receipt Date: 20161025
  Transmission Date: 20170207
  Serious: No
  Sender: FDA-Public Use
  Company Number: None

PATIENT
  Age: 55 Year
  Sex: Male
  Weight: 101.4 kg

DRUGS (2)
  1. CARBOPLATIN. [Suspect]
     Active Substance: CARBOPLATIN
     Indication: PENIS CARCINOMA STAGE IV
     Route: 042
     Dates: start: 20160722, end: 20160912
  2. DOCETAXEL. [Concomitant]
     Active Substance: DOCETAXEL
     Route: 042
     Dates: start: 20160418, end: 20160912

REACTIONS (8)
  - Dyspnoea [None]
  - Oxygen saturation decreased [None]
  - Wheezing [None]
  - Cough [None]
  - Hypotension [None]
  - Toxicity to various agents [None]
  - Infusion related reaction [None]
  - Tachycardia [None]

NARRATIVE: CASE EVENT DATE: 20160913
